FAERS Safety Report 8012311-1 (Version None)
Quarter: 2011Q4

REPORT INFORMATION
  Report Type: 
  Country: None (occurrence: None)
  Receive Date: 20111228
  Receipt Date: 20111223
  Transmission Date: 20120403
  Serious: Yes (Other)
  Sender: FDA-Public Use
  Company Number: US-PFIZER INC-2011313787

PATIENT
  Sex: Male

DRUGS (3)
  1. ASPIRIN [Concomitant]
     Dosage: UNKNOWN DOSAGE AT NIGHT
  2. CELEBREX [Suspect]
     Dosage: UNKNOWN DOSAGE IN THE MORNING
  3. ASPIRIN [Concomitant]
     Dosage: MORNING AND NIGHT

REACTIONS (3)
  - ABDOMINAL DISCOMFORT [None]
  - ARTHROPATHY [None]
  - FLATULENCE [None]
